FAERS Safety Report 15458235 (Version 2)
Quarter: 2018Q4

REPORT INFORMATION
  Report Type: Report from Study
  Country: US (occurrence: US)
  Receive Date: 20181003
  Receipt Date: 20181022
  Transmission Date: 20190204
  Serious: Yes (Hospitalization, Other)
  Sender: FDA-Public Use
  Company Number: US-TAKEDA-2017TUS015737

PATIENT
  Age: 59 Year
  Sex: Female

DRUGS (3)
  1. PREDNISONE. [Concomitant]
     Active Substance: PREDNISONE
     Dosage: 10 MG, QD
     Route: 048
     Dates: start: 20170719, end: 20170724
  2. VEDOLIZUMAB [Suspect]
     Active Substance: VEDOLIZUMAB
     Indication: COLITIS ULCERATIVE
     Dosage: 300 MG, UNK
     Route: 042
     Dates: start: 20170710
  3. PREDNISONE. [Concomitant]
     Active Substance: PREDNISONE
     Indication: SWELLING
     Dosage: 10 MG, BID
     Dates: start: 20170711, end: 20170718

REACTIONS (11)
  - Postoperative wound infection [Recovered/Resolved]
  - Infusion site coldness [Recovered/Resolved]
  - Diarrhoea [Unknown]
  - Weight increased [Unknown]
  - Defaecation urgency [Recovering/Resolving]
  - Gastric disorder [Recovered/Resolved]
  - Arthropathy [Not Recovered/Not Resolved]
  - Anal incontinence [Unknown]
  - Poor venous access [Unknown]
  - Frustration tolerance decreased [Unknown]
  - Constipation [Unknown]

NARRATIVE: CASE EVENT DATE: 20170723
